FAERS Safety Report 4577667-0 (Version None)
Quarter: 2005Q1

REPORT INFORMATION
  Report Type: 
  Country: None (occurrence: None)
  Receive Date: 20050210
  Receipt Date: 20050105
  Transmission Date: 20050727
  Serious: Yes (Life-Threatening)
  Sender: FDA-Public Use
  Company Number: DE-MERCK-0501DEU00149

PATIENT
  Age: 62 Year
  Sex: Male

DRUGS (5)
  1. VIOXX [Suspect]
     Indication: CAUDA EQUINA SYNDROME
     Route: 048
     Dates: start: 20010101, end: 20040601
  2. VIOXX [Suspect]
     Indication: PAIN
     Route: 048
     Dates: start: 20010101, end: 20040601
  3. FLUPIRTINE MALEATE [Concomitant]
     Route: 065
     Dates: start: 20000101
  4. LEVOTHYROXINE SODIUM [Concomitant]
     Route: 065
     Dates: start: 19890101
  5. ASCORBIC ACID AND ASPIRIN [Concomitant]
     Route: 065

REACTIONS (6)
  - DIZZINESS [None]
  - NAUSEA [None]
  - PALPITATIONS [None]
  - RESTLESSNESS [None]
  - TACHYARRHYTHMIA [None]
  - VENTRICULAR FIBRILLATION [None]
